FAERS Safety Report 19401366 (Version 1)
Quarter: 2021Q2

REPORT INFORMATION
  Report Type: Spontaneous
  Country: US (occurrence: US)
  Receive Date: 20210610
  Receipt Date: 20210610
  Transmission Date: 20210717
  Serious: No
  Sender: FDA-Public Use
  Company Number: US-BAYER-2021-135914

PATIENT
  Sex: Male

DRUGS (5)
  1. BIOTIN [Concomitant]
     Active Substance: BIOTIN
     Indication: DRY MOUTH
  2. STATIN [ATORVASTATIN CALCIUM] [Concomitant]
     Active Substance: ATORVASTATIN CALCIUM
     Dosage: 2 DF, QD
  3. NUBEQA [Suspect]
     Active Substance: DAROLUTAMIDE
  4. IBUPROFEN. [Concomitant]
     Active Substance: IBUPROFEN
     Indication: POLYARTHRITIS
     Dosage: 2 DF
  5. VALTREX [Concomitant]
     Active Substance: VALACYCLOVIR HYDROCHLORIDE
     Indication: HERPES SIMPLEX
     Dosage: 500 MG, QD

REACTIONS (2)
  - Dizziness [None]
  - Hypoaesthesia [None]
